FAERS Safety Report 18969103 (Version 2)
Quarter: 2021Q1

REPORT INFORMATION
  Report Type: Spontaneous
  Country: CH (occurrence: CH)
  Receive Date: 20210304
  Receipt Date: 20210318
  Transmission Date: 20210420
  Serious: Yes (Death)
  Sender: FDA-Public Use
  Company Number: CH-BAXTER-2021BAX004188

PATIENT
  Age: 76 Year
  Sex: Male

DRUGS (2)
  1. EXTRANEAL [Suspect]
     Active Substance: CALCIUM CHLORIDE\ICODEXTRIN\MAGNESIUM CHLORIDE\SODIUM CHLORIDE\SODIUM LACTATE
     Indication: PERITONEAL DIALYSIS
     Dosage: DRUG GIVEN DAILY
     Route: 033
  2. PHYSIONEAL 40 1.36% [Suspect]
     Active Substance: CALCIUM CL\DEXTROSE\MAGNESIUM CL\SODIUM BICAR\SODIUM CL\SODIUM LACT
     Indication: PERITONEAL DIALYSIS
     Dosage: DRUG GIVEN DAILY
     Route: 033

REACTIONS (1)
  - Death [Fatal]

NARRATIVE: CASE EVENT DATE: 20210222
